FAERS Safety Report 16877706 (Version 27)
Quarter: 2022Q1

REPORT INFORMATION
  Report Type: Other
  Country: DE (occurrence: None)
  Receive Date: 20191002
  Receipt Date: 20220316
  Transmission Date: 20220423
  Serious: Yes (Hospitalization, Other)
  Sender: FDA-Public Use
  Company Number: DE-ROCHE-2095674

PATIENT
  Age: 63 Year
  Sex: Female

DRUGS (16)
  1. OCREVUS [Suspect]
     Active Substance: OCRELIZUMAB
     Indication: Primary progressive multiple sclerosis
     Route: 042
     Dates: start: 20180314
  2. OCREVUS [Suspect]
     Active Substance: OCRELIZUMAB
     Route: 042
  3. OCREVUS [Suspect]
     Active Substance: OCRELIZUMAB
     Dosage: 4TH MAINTENANCE DOSE
     Route: 042
     Dates: start: 20200508
  4. OCREVUS [Suspect]
     Active Substance: OCRELIZUMAB
     Dosage: NEXT INFUSION WAS RECEIVED ON 29/JUL/2021
     Route: 042
     Dates: start: 20210129
  5. OCREVUS [Suspect]
     Active Substance: OCRELIZUMAB
     Route: 042
     Dates: start: 2021
  6. OCREVUS [Suspect]
     Active Substance: OCRELIZUMAB
     Route: 042
     Dates: start: 20210910
  7. OCREVUS [Suspect]
     Active Substance: OCRELIZUMAB
     Route: 042
     Dates: start: 20210720
  8. BACLOFEN [Suspect]
     Active Substance: BACLOFEN
     Indication: Muscle spasticity
     Route: 065
     Dates: start: 201904, end: 2019
  9. COVID-19 VACCINE NOS [Suspect]
     Active Substance: COVID-19 VACCINE NOS
     Indication: COVID-19 prophylaxis
     Route: 065
     Dates: start: 20210428
  10. METHYLPREDNISOLONE [Concomitant]
     Active Substance: METHYLPREDNISOLONE
     Indication: Premedication
  11. ACETAMINOPHEN [Concomitant]
     Active Substance: ACETAMINOPHEN
     Indication: Premedication
  12. DALFAMPRIDINE [Concomitant]
     Active Substance: DALFAMPRIDINE
     Dosage: 1-0-1
  13. LEVOTHYROXINE SODIUM [Concomitant]
     Active Substance: LEVOTHYROXINE SODIUM
  14. TIZANIDINE [Concomitant]
     Active Substance: TIZANIDINE
  15. TIZANIDINE [Concomitant]
     Active Substance: TIZANIDINE
  16. CITALOPRAM [Concomitant]
     Active Substance: CITALOPRAM HYDROBROMIDE

REACTIONS (46)
  - Cervical vertebral fracture [Recovered/Resolved]
  - Fall [Unknown]
  - Bone cyst [Unknown]
  - Spinal disorder [Unknown]
  - Trigeminal neuralgia [Not Recovered/Not Resolved]
  - Nasopharyngitis [Recovering/Resolving]
  - Dental implantation [Recovered/Resolved]
  - Rhinorrhoea [Recovered/Resolved]
  - Balance disorder [Not Recovered/Not Resolved]
  - Gait disturbance [Not Recovered/Not Resolved]
  - Hypoaesthesia [Not Recovered/Not Resolved]
  - Intervertebral disc protrusion [Not Recovered/Not Resolved]
  - Spondylolisthesis [Not Recovered/Not Resolved]
  - Ligament injury [Not Recovered/Not Resolved]
  - Muscle spasticity [Not Recovered/Not Resolved]
  - Pain [Recovered/Resolved]
  - Urticaria [Recovered/Resolved]
  - Peroneal nerve palsy [Not Recovered/Not Resolved]
  - Feeling cold [Not Recovered/Not Resolved]
  - Fatigue [Recovered/Resolved]
  - Anxiety [Recovered/Resolved]
  - Panic attack [Recovered/Resolved]
  - Depression [Recovered/Resolved]
  - Tooth infection [Recovered/Resolved]
  - Sleep disorder [Not Recovered/Not Resolved]
  - Trigeminal neuralgia [Recovered/Resolved]
  - Blood blister [Recovered/Resolved]
  - Haemorrhage [Recovered/Resolved]
  - Pain in extremity [Recovered/Resolved]
  - Injection site haematoma [Recovered/Resolved]
  - Asthenia [Not Recovered/Not Resolved]
  - Headache [Recovered/Resolved]
  - Gastrointestinal infection [Not Recovered/Not Resolved]
  - Pollakiuria [Recovered/Resolved]
  - Abdominal pain upper [Recovered/Resolved]
  - Nausea [Recovered/Resolved]
  - Muscle spasticity [Recovering/Resolving]
  - Fatigue [Recovered/Resolved]
  - Fatigue [Not Recovered/Not Resolved]
  - Muscle spasticity [Not Recovered/Not Resolved]
  - Arthralgia [Not Recovered/Not Resolved]
  - Suicidal ideation [Recovering/Resolving]
  - Gait disturbance [Not Recovered/Not Resolved]
  - Sensory disturbance [Not Recovered/Not Resolved]
  - Skin laceration [Not Recovered/Not Resolved]
  - Joint stiffness [Unknown]

NARRATIVE: CASE EVENT DATE: 20180315
